FAERS Safety Report 4898481-2 (Version None)
Quarter: 2006Q1

REPORT INFORMATION
  Report Type: 
  Country: None (occurrence: None)
  Receive Date: 20060131
  Receipt Date: 20060131
  Transmission Date: 20060701
  Serious: Yes (Hospitalization, Other)
  Sender: FDA-Public Use
  Company Number: None

PATIENT
  Sex: Female
  Weight: 70.8 kg

DRUGS (2)
  1. CYTARABINE [Suspect]
     Indication: ACUTE MYELOID LEUKAEMIA
     Dosage: 1351 MG
     Dates: start: 20051213, end: 20051219
  2. DAUNORUBICIN [Suspect]
     Dosage: 348 MG
     Dates: start: 20051213, end: 20051215

REACTIONS (3)
  - FEBRILE NEUTROPENIA [None]
  - LUNG NEOPLASM [None]
  - PNEUMONIA FUNGAL [None]
